FAERS Safety Report 21440041 (Version 19)
Quarter: 2024Q4

REPORT INFORMATION
  Report Type: Spontaneous
  Country: US (occurrence: US)
  Receive Date: 20221011
  Receipt Date: 20241107
  Transmission Date: 20250115
  Serious: Yes (Other)
  Sender: PFIZER
  Company Number: US-PFIZER INC-PV202200080232

PATIENT
  Age: 69 Year
  Sex: Female
  Weight: 47.6 kg

DRUGS (13)
  1. IBRANCE [Suspect]
     Active Substance: PALBOCICLIB
     Indication: Breast cancer female
     Dosage: 1 TABLET DAILY, DAYS 1-21 EACH 28 DAY CYCLE, WHOLE W/ WATER, WITH/WITHOUT FOOD AT SAME TIME EACH DAY
     Route: 048
     Dates: start: 20220920
  2. IBRANCE [Suspect]
     Active Substance: PALBOCICLIB
     Dosage: 1 TABLET DAILY, DAYS 1-21 EACH 28 DAY CYCLE, WHOLE W/ WATER, WITH/WITHOUT FOOD AT SAME TIME EACH DAY
     Route: 048
     Dates: start: 20220928
  3. IBRANCE [Suspect]
     Active Substance: PALBOCICLIB
     Dosage: 100 MG, TAKE 1 TABLET BY MOUTH DAILY ON DAYS 1-21 OF EACH 28 DAY CYCLE
     Route: 048
     Dates: start: 20220928
  4. IBRANCE [Suspect]
     Active Substance: PALBOCICLIB
     Dosage: 1 TABLET DAILY DAYS 1-21 EACH 28 DAY CYCLE, WHOLE WITH WATER, WITH OR WITHOUT FOOD
     Route: 048
     Dates: start: 20221001
  5. IBRANCE [Suspect]
     Active Substance: PALBOCICLIB
     Dosage: 1 (75 MG) TABLET DAILY DAYS 1-21 EACH 28 DAY CYCLE, WHOLE WITH WATER, WITH OR WITHOUT FOOD
     Route: 048
     Dates: start: 20221021
  6. IBRANCE [Suspect]
     Active Substance: PALBOCICLIB
     Dosage: DAYS 1-21 EACH 28 DAY CYCLE, WHOLE W/ WATER, WITH/WITHOUT FOOD AT SAME TIME EACH DAY
     Route: 048
     Dates: start: 20221125
  7. BIOTIN\CALCIUM PANTOTHENATE\CHOLINE BITARTRATE\CYANOCOBALAMIN\FOLIC AC [Concomitant]
     Active Substance: BIOTIN\CALCIUM PANTOTHENATE\CHOLINE BITARTRATE\CYANOCOBALAMIN\FOLIC ACID\INOSITOL\NIACINAMIDE\PYRIDO
     Dosage: 500 MG
  8. VITAMIN C [Concomitant]
     Active Substance: ASCORBIC ACID
     Dosage: 500 MG
  9. FERROUS SULFATE [Concomitant]
     Active Substance: FERROUS SULFATE
     Dosage: 325 MG
  10. LETROZOLE [Concomitant]
     Active Substance: LETROZOLE
     Indication: Breast cancer female
     Dosage: 2.5 MG, DAILY
     Dates: start: 202209
  11. VITAMIN B12 [Concomitant]
     Active Substance: CYANOCOBALAMIN
     Dosage: 500 UG
  12. CLINDAMYCIN [Concomitant]
     Active Substance: CLINDAMYCIN
     Dosage: UNK
  13. ONDANSETRON [Concomitant]
     Active Substance: ONDANSETRON
     Dosage: UNK

REACTIONS (17)
  - Dental operation [Unknown]
  - Vitreous degeneration [Not Recovered/Not Resolved]
  - White blood cell count decreased [Not Recovered/Not Resolved]
  - Red blood cell count decreased [Not Recovered/Not Resolved]
  - Decreased appetite [Not Recovered/Not Resolved]
  - Alopecia [Not Recovered/Not Resolved]
  - Dry mouth [Not Recovered/Not Resolved]
  - Lip dry [Not Recovered/Not Resolved]
  - Anaemia [Not Recovered/Not Resolved]
  - Fatigue [Not Recovered/Not Resolved]
  - Dry eye [Unknown]
  - Dry skin [Not Recovered/Not Resolved]
  - Visual impairment [Not Recovered/Not Resolved]
  - Eye infection [Unknown]
  - Wound [Unknown]
  - Nausea [Not Recovered/Not Resolved]
  - Rash [Not Recovered/Not Resolved]

NARRATIVE: CASE EVENT DATE: 20220101
